FAERS Safety Report 5017814-X (Version None)
Quarter: 2006Q2

REPORT INFORMATION
  Report Type: 
  Country: None (occurrence: None)
  Receive Date: 20060605
  Receipt Date: 20060523
  Transmission Date: 20061013
  Serious: Yes (Hospitalization)
  Sender: FDA-Public Use
  Company Number: PHEH2006US06761

PATIENT
  Age: 38 Year
  Sex: Female

DRUGS (5)
  1. ZELNORM [Suspect]
     Indication: IRRITABLE BOWEL SYNDROME
     Dosage: 6 MG, BID
     Route: 048
     Dates: start: 20060101, end: 20060320
  2. WELLBUTRIN [Concomitant]
     Dosage: 150 MG, UNK
  3. PREMARIN [Concomitant]
  4. TRAZODONE HCL [Concomitant]
  5. MIRALAX [Concomitant]

REACTIONS (4)
  - CHOLECYSTITIS CHRONIC [None]
  - DIARRHOEA [None]
  - LYMPHADENOPATHY [None]
  - VOMITING [None]
